FAERS Safety Report 16770652 (Version 33)
Quarter: 2022Q1

REPORT INFORMATION
  Report Type: Report from Study
  Country: CA (occurrence: CA)
  Receive Date: 20190904
  Receipt Date: 20220216
  Transmission Date: 20220423
  Serious: Yes (Hospitalization, Other)
  Sender: FDA-Public Use
  Company Number: PHHY2016CA187404

PATIENT
  Age: 63 Year
  Sex: Female

DRUGS (12)
  1. SANDOSTATIN [Suspect]
     Active Substance: OCTREOTIDE ACETATE
     Indication: Acromegaly
     Dosage: 100 UG, ONCE/SINGLE
     Route: 058
     Dates: start: 20160116, end: 20160116
  2. SANDOSTATIN [Suspect]
     Active Substance: OCTREOTIDE ACETATE
  3. SANDOSTATIN [Suspect]
     Active Substance: OCTREOTIDE ACETATE
  4. SANDOSTATIN LAR DEPOT [Suspect]
     Active Substance: OCTREOTIDE ACETATE
     Indication: Acromegaly
     Dosage: 20 MG, QMO (EVERY 4 WEEKS)
     Route: 030
     Dates: start: 20160117
  5. SANDOSTATIN LAR DEPOT [Suspect]
     Active Substance: OCTREOTIDE ACETATE
     Dosage: 10 MG, QMO
     Route: 030
  6. SANDOSTATIN LAR DEPOT [Suspect]
     Active Substance: OCTREOTIDE ACETATE
     Dosage: 10 MG, Q4W
     Route: 065
  7. SANDOSTATIN LAR DEPOT [Suspect]
     Active Substance: OCTREOTIDE ACETATE
     Dosage: 10 MG, Q4W
     Route: 065
     Dates: start: 20160117
  8. METOPROLOL [Suspect]
     Active Substance: METOPROLOL
     Indication: Hypertension
     Dosage: 25 MG, QD (ONCE A DAY)
     Route: 048
     Dates: start: 20180201, end: 20180203
  9. PERINDOPRIL [Suspect]
     Active Substance: PERINDOPRIL
     Indication: Hypertension
     Dosage: 1 DF, BID
     Route: 048
     Dates: start: 2018
  10. PERINDOPRIL [Suspect]
     Active Substance: PERINDOPRIL
     Dosage: 1 DF, BID
     Route: 048
     Dates: end: 2018
  11. CICLOPIROX [Concomitant]
     Active Substance: CICLOPIROX
     Indication: Fungal infection
     Dosage: UNK
     Route: 065
     Dates: end: 202001
  12. COTAZYM ECS [Concomitant]
     Indication: Product used for unknown indication
     Dosage: UNK
     Route: 065

REACTIONS (77)
  - Nephrolithiasis [Unknown]
  - Diabetes mellitus [Unknown]
  - Thirst [Unknown]
  - Pollakiuria [Unknown]
  - Fatigue [Unknown]
  - Malaise [Unknown]
  - Dizziness [Not Recovered/Not Resolved]
  - Blood pressure increased [Unknown]
  - Pancreatolithiasis [Unknown]
  - Abscess oral [Unknown]
  - Blood pressure systolic increased [Unknown]
  - Blood pressure diastolic decreased [Unknown]
  - Lower respiratory tract infection [Unknown]
  - Loss of consciousness [Unknown]
  - Intestinal obstruction [Recovered/Resolved]
  - Intestinal obstruction [Unknown]
  - Nausea [Unknown]
  - Cataract [Unknown]
  - Visual impairment [Unknown]
  - Alopecia [Not Recovered/Not Resolved]
  - Chest pain [Unknown]
  - Neoplasm [Unknown]
  - Hyperhidrosis [Not Recovered/Not Resolved]
  - Onychomycosis [Not Recovered/Not Resolved]
  - Onychalgia [Unknown]
  - Onychomadesis [Unknown]
  - Nail growth abnormal [Unknown]
  - Nail pigmentation [Unknown]
  - Eyelid ptosis [Unknown]
  - Swelling of eyelid [Unknown]
  - Eyelid disorder [Unknown]
  - Sleep apnoea syndrome [Unknown]
  - Stress [Unknown]
  - Productive cough [Unknown]
  - Urinary tract infection [Unknown]
  - Initial insomnia [Unknown]
  - Abdominal adhesions [Unknown]
  - Polyp [Unknown]
  - Hypertension [Unknown]
  - Swollen tongue [Unknown]
  - Formication [Unknown]
  - Fall [Unknown]
  - Vertigo [Unknown]
  - Dysphagia [Unknown]
  - Balance disorder [Unknown]
  - Acrochordon [Unknown]
  - Melanocytic naevus [Unknown]
  - Viral infection [Unknown]
  - Restless legs syndrome [Unknown]
  - Nail discolouration [Unknown]
  - Acne [Unknown]
  - Anxiety [Unknown]
  - Localised infection [Unknown]
  - Limb discomfort [Unknown]
  - Blood glucose increased [Unknown]
  - Ear lobe infection [Unknown]
  - Pain in extremity [Unknown]
  - Peripheral swelling [Unknown]
  - Nasopharyngitis [Unknown]
  - Erythema [Recovering/Resolving]
  - Fungal infection [Unknown]
  - Hypersensitivity [Unknown]
  - Rash pruritic [Unknown]
  - Sinus congestion [Unknown]
  - Gout [Recovering/Resolving]
  - Arthralgia [Unknown]
  - Vomiting [Unknown]
  - Headache [Recovering/Resolving]
  - Abdominal distension [Unknown]
  - Dyspnoea [Unknown]
  - Pruritus [Unknown]
  - Abdominal pain [Recovered/Resolved]
  - Diarrhoea [Unknown]
  - Skin odour abnormal [Unknown]
  - Injection site pain [Unknown]
  - Breast mass [Unknown]
  - Epistaxis [Unknown]

NARRATIVE: CASE EVENT DATE: 20160116
